FAERS Safety Report 5802939-9 (Version None)
Quarter: 2008Q3

REPORT INFORMATION
  Report Type: 
  Country: None (occurrence: None)
  Receive Date: 20080703
  Receipt Date: 20080627
  Transmission Date: 20090109
  Serious: Yes (Other)
  Sender: FDA-Public Use
  Company Number: 2008SP007427

PATIENT
  Age: 45 Year
  Sex: Female

DRUGS (2)
  1. PEG-INTRON [Suspect]
     Indication: HEPATITIS C
     Dosage: SC
     Route: 058
     Dates: start: 20071217
  2. RIBAVIRIN [Suspect]
     Indication: HEPATITIS C
     Dosage: PO
     Route: 048
     Dates: start: 20071217

REACTIONS (13)
  - ALOPECIA [None]
  - DEHYDRATION [None]
  - DRY EYE [None]
  - DRY SKIN [None]
  - HEADACHE [None]
  - INFLUENZA LIKE ILLNESS [None]
  - MALAISE [None]
  - NAUSEA [None]
  - ORAL PAIN [None]
  - PROTEIN TOTAL DECREASED [None]
  - SKIN EXFOLIATION [None]
  - VISUAL IMPAIRMENT [None]
  - VITAMIN D DECREASED [None]
